FAERS Safety Report 5206594-0 (Version None)
Quarter: 2007Q1

REPORT INFORMATION
  Report Type: 
  Country: None (occurrence: None)
  Receive Date: 20070109
  Receipt Date: 20061228
  Transmission Date: 20070707
  Serious: Yes (Hospitalization)
  Sender: FDA-Public Use
  Company Number: 2006BI013661

PATIENT
  Age: 53 Year
  Sex: Female
  Weight: 118.8424 kg

DRUGS (8)
  1. AVONEX [Suspect]
     Indication: MULTIPLE SCLEROSIS
     Dosage: 30 UG; QW; IM
     Route: 030
     Dates: start: 20030101, end: 20040101
  2. AVONEX [Suspect]
     Indication: MULTIPLE SCLEROSIS
     Dosage: 30 UG; QW; IM
     Route: 030
     Dates: start: 20040101
  3. SYNTHROID [Concomitant]
  4. ENABLEX [Concomitant]
  5. NEURONTIN [Concomitant]
  6. PROZAC [Concomitant]
  7. NOVANTRONE [Concomitant]
  8. VITAMIN B-12 [Concomitant]

REACTIONS (11)
  - ARTHRITIS [None]
  - BALANCE DISORDER [None]
  - BLOOD CHOLESTEROL INCREASED [None]
  - HAEMATOMA [None]
  - HYPOTHYROIDISM [None]
  - MULTIPLE SCLEROSIS [None]
  - NEUROPATHIC ARTHROPATHY [None]
  - NEUROPATHY [None]
  - OSTEOARTHRITIS [None]
  - PERONEAL NERVE PALSY [None]
  - VITAMIN B12 DEFICIENCY [None]
